FAERS Safety Report 14163788 (Version 1)
Quarter: 2017Q4

REPORT INFORMATION
  Report Type: Spontaneous
  Country: US (occurrence: US)
  Receive Date: 20171106
  Receipt Date: 20171106
  Transmission Date: 20180321
  Serious: No
  Sender: FDA-Public Use
  Company Number: US-SHIRE-US201726502

PATIENT

DRUGS (1)
  1. VYVANSE [Suspect]
     Active Substance: LISDEXAMFETAMINE DIMESYLATE
     Indication: ATTENTION DEFICIT/HYPERACTIVITY DISORDER

REACTIONS (6)
  - Hypoaesthesia [Unknown]
  - Heart rate increased [Unknown]
  - Palpitations [Unknown]
  - Swelling [Unknown]
  - Chest pain [Unknown]
  - Dyspnoea [Unknown]
